FAERS Safety Report 17233098 (Version 1)
Quarter: 2020Q1

REPORT INFORMATION
  Report Type: Spontaneous
  Country: ES (occurrence: ES)
  Receive Date: 20200104
  Receipt Date: 20200104
  Transmission Date: 20200409
  Serious: No
  Sender: FDA-Public Use
  Company Number: ES-B.I. PHARMACEUTICALS,INC./RIDGEFIELD-2020-MI-000436

PATIENT
  Age: 80 Year
  Sex: Female

DRUGS (2)
  1. TRAJENTA [Suspect]
     Active Substance: LINAGLIPTIN
     Indication: TYPE 2 DIABETES MELLITUS
     Dosage: 5 MG
     Route: 048
     Dates: start: 20191219, end: 20191231
  2. TRAJENTA [Suspect]
     Active Substance: LINAGLIPTIN
     Dosage: 5 MG BID
     Route: 048
     Dates: start: 20200101

REACTIONS (1)
  - Overdose [Unknown]
